FAERS Safety Report 9284309 (Version 1)
Quarter: 2013Q2

REPORT INFORMATION
  Report Type: Spontaneous
  Country: CA (occurrence: CA)
  Receive Date: 20130510
  Receipt Date: 20130510
  Transmission Date: 20140414
  Serious: Yes (Hospitalization, Disabling, Other)
  Sender: FDA-Public Use
  Company Number: PHHY2013CA046637

PATIENT
  Age: 81 Year
  Sex: Female
  Weight: 71 kg

DRUGS (16)
  1. ACLASTA [Suspect]
     Dosage: 5 MG, ONCE
     Route: 042
  2. AMLODIPINE [Concomitant]
  3. ASA [Concomitant]
  4. FERROUS GLUCONATE [Concomitant]
  5. GABAPENTIN [Concomitant]
  6. HYDROMORPHONE [Concomitant]
  7. METOPROLOL [Concomitant]
  8. OCUVITE PRESERVISION [Concomitant]
  9. LUTEIN [Concomitant]
  10. OMEPRAZOLE [Concomitant]
  11. RAMIPRIL [Concomitant]
  12. ROSUVASTATIN [Concomitant]
  13. SERTRALINE [Concomitant]
  14. TEMAZEPAM [Concomitant]
  15. VITAMIN B12 [Concomitant]
  16. VITAMIN D [Concomitant]

REACTIONS (2)
  - Renal tubular necrosis [Not Recovered/Not Resolved]
  - Renal failure acute [Not Recovered/Not Resolved]
